FAERS Safety Report 7961791-6 (Version None)
Quarter: 2011Q4

REPORT INFORMATION
  Report Type: 
  Country: None (occurrence: None)
  Receive Date: 20111207
  Receipt Date: 20111207
  Transmission Date: 20120403
  Serious: Yes (Hospitalization)
  Sender: FDA-Public Use
  Company Number: None

PATIENT
  Age: 63 Year
  Sex: Male
  Weight: 127 kg

DRUGS (2)
  1. LEVAQUIN [Suspect]
     Indication: CYSTITIS
     Dosage: 500MG
     Route: 048
     Dates: start: 20110610, end: 20110619
  2. LEVAQUIN [Suspect]
     Indication: EPIDIDYMITIS
     Dosage: 500MG
     Route: 048
     Dates: start: 20110610, end: 20110619

REACTIONS (2)
  - PULMONARY EMBOLISM [None]
  - BRONCHITIS [None]
